FAERS Safety Report 25798103 (Version 1)
Quarter: 2025Q3

REPORT INFORMATION
  Report Type: Spontaneous
  Country: US (occurrence: US)
  Receive Date: 20250912
  Receipt Date: 20250912
  Transmission Date: 20251020
  Serious: No
  Sender: PFIZER
  Company Number: US-PFIZER INC-PV202500109690

PATIENT
  Age: 51 Year
  Sex: Female

DRUGS (4)
  1. IBRANCE [Suspect]
     Active Substance: PALBOCICLIB
     Dates: start: 20250610, end: 20250709
  2. IBRANCE [Suspect]
     Active Substance: PALBOCICLIB
     Dates: start: 20250719
  3. ITOVEBI [Suspect]
     Active Substance: INAVOLISIB
     Dates: start: 20250811, end: 20250824
  4. ITOVEBI [Suspect]
     Active Substance: INAVOLISIB
     Dates: start: 20250902

REACTIONS (3)
  - Stomatitis [Not Recovered/Not Resolved]
  - Blood glucose increased [Not Recovered/Not Resolved]
  - Poor quality sleep [Not Recovered/Not Resolved]

NARRATIVE: CASE EVENT DATE: 20250801
